FAERS Safety Report 14492204 (Version 2)
Quarter: 2019Q1

REPORT INFORMATION
  Report Type: Spontaneous
  Country: US (occurrence: US)
  Receive Date: 20180206
  Receipt Date: 20190208
  Transmission Date: 20190417
  Serious: Yes (Other)
  Sender: FDA-Public Use
  Company Number: US-ASTRAZENECA-2018SE12024

PATIENT
  Age: 51 Year
  Sex: Female
  Weight: 75 kg

DRUGS (59)
  1. BOSUTINIB [Suspect]
     Active Substance: BOSUTINIB
     Indication: CHRONIC MYELOID LEUKAEMIA
     Route: 048
  2. GABAPENTIN. [Concomitant]
     Active Substance: GABAPENTIN
     Indication: HERPES ZOSTER
     Route: 048
     Dates: start: 20131020, end: 20151104
  3. HYDROXYUREA. [Concomitant]
     Active Substance: HYDROXYUREA
     Indication: CHRONIC MYELOID LEUKAEMIA
     Route: 048
     Dates: start: 20150511, end: 20150622
  4. HYDROXYUREA. [Concomitant]
     Active Substance: HYDROXYUREA
     Indication: CHRONIC MYELOID LEUKAEMIA
     Route: 048
  5. BENADRYL [Concomitant]
     Active Substance: DIPHENHYDRAMINE HYDROCHLORIDE
     Route: 048
  6. PEPCID [Concomitant]
     Active Substance: FAMOTIDINE
     Route: 048
     Dates: start: 20150630
  7. CEFALEXIN [Concomitant]
     Active Substance: CEPHALEXIN
     Route: 048
  8. ACYCLOVIR. [Concomitant]
     Active Substance: ACYCLOVIR
     Indication: HERPES ZOSTER
     Route: 048
     Dates: start: 20131018, end: 20160520
  9. DOXYCYCLINE HYCLATE. [Concomitant]
     Active Substance: DOXYCYCLINE HYCLATE
     Dosage: 100 MG
     Route: 048
     Dates: start: 20180823
  10. BOSUTINIB [Suspect]
     Active Substance: BOSUTINIB
     Indication: CHRONIC MYELOID LEUKAEMIA
     Route: 048
     Dates: start: 20150617, end: 20160418
  11. CARVEDILOL. [Concomitant]
     Active Substance: CARVEDILOL
     Route: 048
     Dates: start: 20150917, end: 20151209
  12. PREDNISONE. [Concomitant]
     Active Substance: PREDNISONE
     Route: 048
     Dates: start: 20160426, end: 20160615
  13. TRAMADOL. [Concomitant]
     Active Substance: TRAMADOL
     Dosage: 50MG AS NEEDED
     Route: 048
     Dates: start: 20161107
  14. MYCOPHENOLATE MOFETIL. [Concomitant]
     Active Substance: MYCOPHENOLATE MOFETIL
     Indication: SYSTEMIC LUPUS ERYTHEMATOSUS
     Route: 048
     Dates: start: 20160708, end: 20170324
  15. CYCLOSPORINE. [Concomitant]
     Active Substance: CYCLOSPORINE
     Indication: SYSTEMIC LUPUS ERYTHEMATOSUS
     Dosage: 1 GTT TWICE DAILY
     Dates: start: 20150604, end: 20150902
  16. CYCLOSPORINE. [Concomitant]
     Active Substance: CYCLOSPORINE
     Indication: SYSTEMIC LUPUS ERYTHEMATOSUS
     Dosage: 1 % AT 1 DROP TWICE DAILY
     Dates: start: 20160804, end: 20161107
  17. FAMOTIDINE. [Concomitant]
     Active Substance: FAMOTIDINE
     Indication: SYSTEMIC LUPUS ERYTHEMATOSUS
     Dates: start: 20160502, end: 20160615
  18. METHYLPREDNISOLONE. [Concomitant]
     Active Substance: METHYLPREDNISOLONE
     Dosage: 1% OPHTHALMIC SOLUTION AT 1 DROPS OCULAR/OPHTHALMIC FOUR TIMES DAILY
     Dates: start: 20161229
  19. BENADRYL [Concomitant]
     Active Substance: DIPHENHYDRAMINE HYDROCHLORIDE
     Route: 048
     Dates: start: 20150629, end: 20150630
  20. VORICONAZOLE. [Concomitant]
     Active Substance: VORICONAZOLE
     Dates: start: 20160506, end: 20160520
  21. METHOTREXATE. [Concomitant]
     Active Substance: METHOTREXATE
     Indication: SYSTEMIC LUPUS ERYTHEMATOSUS
     Dosage: 10MG PO (BY MOUTH) WEEKLY
     Route: 048
     Dates: start: 20170224, end: 20170629
  22. GABAPENTIN. [Concomitant]
     Active Substance: GABAPENTIN
     Indication: HERPES ZOSTER
     Route: 048
     Dates: start: 20151105
  23. BENADRYL [Concomitant]
     Active Substance: DIPHENHYDRAMINE HYDROCHLORIDE
     Route: 048
     Dates: start: 20150630, end: 20150815
  24. CYCLOSPORINE. [Concomitant]
     Active Substance: CYCLOSPORINE
     Indication: SYSTEMIC LUPUS ERYTHEMATOSUS
     Dates: end: 20160225
  25. DOXYCYCLINE. [Concomitant]
     Active Substance: DOXYCYCLINE
     Indication: SYSTEMIC LUPUS ERYTHEMATOSUS
     Dates: start: 20150917, end: 20160801
  26. VIGAMOX [Concomitant]
     Active Substance: MOXIFLOXACIN HYDROCHLORIDE
     Indication: SYSTEMIC LUPUS ERYTHEMATOSUS
     Dosage: 1 DROPS TWICE DAILY
     Dates: start: 20170317
  27. HYDROXYCHLOROQUINE [Concomitant]
     Active Substance: HYDROXYCHLOROQUINE
     Indication: SYSTEMIC LUPUS ERYTHEMATOSUS
     Route: 048
     Dates: start: 20170501
  28. PREVACID [Concomitant]
     Active Substance: LANSOPRAZOLE
     Indication: GASTROOESOPHAGEAL REFLUX DISEASE
     Route: 048
  29. CARVEDILOL. [Concomitant]
     Active Substance: CARVEDILOL
     Route: 048
     Dates: start: 20151214
  30. ACYCLOVIR. [Concomitant]
     Active Substance: ACYCLOVIR
     Indication: HERPES ZOSTER
     Route: 048
  31. AMITRIPTYLINE [Concomitant]
     Active Substance: AMITRIPTYLINE
     Indication: ANXIETY
     Route: 048
     Dates: start: 20120501
  32. ALLOPURINOL. [Concomitant]
     Active Substance: ALLOPURINOL
     Indication: CHRONIC MYELOID LEUKAEMIA
     Dates: start: 20150508, end: 20150622
  33. FAMOTIDINE. [Concomitant]
     Active Substance: FAMOTIDINE
     Indication: GASTROOESOPHAGEAL REFLUX DISEASE
     Dates: start: 20160502, end: 20160615
  34. COLESTIPOL [Concomitant]
     Active Substance: COLESTIPOL
     Dates: start: 20170616, end: 20170720
  35. MAGNESIUM SULFATE. [Concomitant]
     Active Substance: MAGNESIUM SULFATE
     Dates: start: 20170425
  36. VENLAFAXINE [Concomitant]
     Active Substance: VENLAFAXINE HYDROCHLORIDE
     Dosage: 37.5 MG EVERY NIGHT (QHS)
     Route: 048
     Dates: start: 20180328
  37. OMEPRAZOLE. [Suspect]
     Active Substance: OMEPRAZOLE
     Indication: GASTROOESOPHAGEAL REFLUX DISEASE
     Route: 048
     Dates: start: 20160603
  38. BOSUTINIB [Suspect]
     Active Substance: BOSUTINIB
     Indication: CHRONIC MYELOID LEUKAEMIA
     Route: 048
     Dates: start: 20160418
  39. CARVEDILOL. [Concomitant]
     Active Substance: CARVEDILOL
     Route: 048
  40. LOTEPREDNOL [Concomitant]
     Active Substance: LOTEPREDNOL
     Dosage: 1 DROP FOUR TIMES DAILY
     Dates: start: 20160225
  41. CEFALEXIN [Concomitant]
     Active Substance: CEPHALEXIN
     Route: 048
     Dates: start: 20160514, end: 20160526
  42. PREDNISONE. [Concomitant]
     Active Substance: PREDNISONE
     Route: 048
     Dates: start: 20161021
  43. TRAMADOL. [Concomitant]
     Active Substance: TRAMADOL
     Dosage: 50 MG AS NEEDED
     Route: 048
     Dates: start: 20160511, end: 20160518
  44. TRAMADOL. [Concomitant]
     Active Substance: TRAMADOL
     Route: 048
  45. LOPERAMIDE [Concomitant]
     Active Substance: LOPERAMIDE
     Dosage: 4 MG PRN AS NEEDED
     Dates: start: 20150618
  46. CYCLOBENZAPRINE. [Concomitant]
     Active Substance: CYCLOBENZAPRINE
     Dosage: 5MG AS NEEDED
     Route: 048
     Dates: start: 20170324
  47. METHOTREXATE. [Concomitant]
     Active Substance: METHOTREXATE
     Indication: SYSTEMIC LUPUS ERYTHEMATOSUS
     Dosage: 20 MG PO (BY MOUTH) WEEKLY
     Route: 048
     Dates: start: 20170630
  48. BOSUTINIB [Suspect]
     Active Substance: BOSUTINIB
     Indication: CHRONIC MYELOID LEUKAEMIA
     Route: 048
     Dates: start: 20170719
  49. CARVEDILOL. [Concomitant]
     Active Substance: CARVEDILOL
     Route: 048
     Dates: start: 20150713, end: 20150916
  50. FERROUS SULFATE. [Concomitant]
     Active Substance: FERROUS SULFATE
     Route: 048
     Dates: start: 20160418
  51. ONDANSETRON [Concomitant]
     Active Substance: ONDANSETRON
     Dosage: 4 MG AS NEEDED
     Route: 048
     Dates: start: 20160603
  52. CYCLOSPORINE. [Concomitant]
     Active Substance: CYCLOSPORINE
     Indication: SYSTEMIC LUPUS ERYTHEMATOSUS
     Dosage: 1% TWICE PER DAY
     Dates: start: 20160414
  53. IBUPROFEN. [Concomitant]
     Active Substance: IBUPROFEN
     Dosage: 600 MG AS NEEDED
     Dates: start: 20121214
  54. LISINOPRIL. [Suspect]
     Active Substance: LISINOPRIL
     Indication: CARDIAC FAILURE
     Route: 048
     Dates: start: 20151012
  55. PREVACID [Concomitant]
     Active Substance: LANSOPRAZOLE
     Indication: GASTROOESOPHAGEAL REFLUX DISEASE
     Route: 048
     Dates: start: 20150518, end: 20150618
  56. MEDROL DOSE PACK [Concomitant]
     Active Substance: METHYLPREDNISOLONE
     Dosage: 4 MG (PER LABELING)
     Route: 048
     Dates: start: 20150630
  57. OFLOXACIN. [Concomitant]
     Active Substance: OFLOXACIN
     Dosage: 1 DROP TWICE DAILY
     Route: 048
     Dates: start: 20160804
  58. TRIAMCINOLONE [Concomitant]
     Active Substance: TRIAMCINOLONE
     Dosage: 0.1% TOPICAL OINTMENT AT 1 APP TOPICAL EVERY DAY
     Dates: start: 20171003
  59. MAGNESIUM OXIDE. [Concomitant]
     Active Substance: MAGNESIUM OXIDE
     Dates: start: 20170424

REACTIONS (2)
  - Diarrhoea [Unknown]
  - Hypomagnesaemia [Recovered/Resolved]

NARRATIVE: CASE EVENT DATE: 20170424
